FAERS Safety Report 10936535 (Version 1)
Quarter: 2015Q1

REPORT INFORMATION
  Report Type: Spontaneous
  Country: US (occurrence: None)
  Receive Date: 20150212
  Receipt Date: 20150212
  Transmission Date: 20150721
  Serious: No
  Sender: FDA-Public Use
  Company Number: TPA2010A06038

PATIENT
  Age: 48 Year
  Sex: Male
  Weight: 145.15 kg

DRUGS (9)
  1. METFORMIN [Concomitant]
     Active Substance: METFORMIN HYDROCHLORIDE
  2. SYNTHROID [Concomitant]
     Active Substance: LEVOTHYROXINE SODIUM
  3. AMBIEN [Concomitant]
     Active Substance: ZOLPIDEM TARTRATE
  4. ULORIC [Suspect]
     Active Substance: FEBUXOSTAT
     Indication: GOUT
     Route: 048
     Dates: start: 20091130, end: 20091230
  5. WARFARIN (WARFARIN) [Concomitant]
     Active Substance: WARFARIN
  6. FUROSEMIDE (FUROSEMIDE) [Concomitant]
     Active Substance: FUROSEMIDE
  7. COREG [Concomitant]
     Active Substance: CARVEDILOL
  8. HYDROCODONE (HYDROCODONE) [Concomitant]
     Active Substance: HYDROCODONE
  9. COLCHICINE (COLCHICINE) [Concomitant]
     Active Substance: COLCHICINE

REACTIONS (3)
  - Nausea [None]
  - Abnormal dreams [None]
  - Drug ineffective [None]
